FAERS Safety Report 19884577 (Version 1)
Quarter: 2021Q3

REPORT INFORMATION
  Report Type: Spontaneous
  Country: US (occurrence: US)
  Receive Date: 20210923
  Receipt Date: 20210923
  Transmission Date: 20211014
  Serious: No
  Sender: FDA-Public Use
  Company Number: None

PATIENT
  Age: 47 Year
  Sex: Male
  Weight: 97.98 kg

DRUGS (1)
  1. DAPSONE (DAPSONE 100MG TAB) [Suspect]
     Active Substance: DAPSONE
     Indication: NEOPLASM MALIGNANT
     Dosage: ?          OTHER FREQUENCY:AM;?
     Route: 048
     Dates: start: 20210324, end: 20210510

REACTIONS (1)
  - Rash [None]

NARRATIVE: CASE EVENT DATE: 20210510
